FAERS Safety Report 7823546-2 (Version None)
Quarter: 2011Q4

REPORT INFORMATION
  Report Type: 
  Country: None (occurrence: None)
  Receive Date: 20111019
  Receipt Date: 20111014
  Transmission Date: 20120403
  Serious: Yes (Life-Threatening, Other)
  Sender: FDA-Public Use
  Company Number: US-AMGEN-USASP2011053393

PATIENT
  Age: 61 Year
  Sex: Female
  Weight: 49.2 kg

DRUGS (6)
  1. FILGRASTIM [Suspect]
     Indication: UTERINE LEIOMYOSARCOMA
     Dosage: 150 MUG/M2, UNK
     Route: 058
     Dates: start: 20110414
  2. PEGFILGRASTIM [Suspect]
     Indication: CHEMOTHERAPY
  3. GEMCITABINE HYDROCHLORIDE [Suspect]
     Indication: UTERINE LEIOMYOSARCOMA
     Dosage: 900 MG/M2, UNK
     Route: 042
     Dates: start: 20110414
  4. BEVACIZUMAB [Suspect]
     Indication: UTERINE LEIOMYOSARCOMA
     Dosage: 15 MG/KG, UNK
     Route: 042
     Dates: start: 20110414
  5. PEGFILGRASTIM [Suspect]
     Indication: UTERINE LEIOMYOSARCOMA
     Dosage: 6 MG, UNK
     Route: 058
  6. DOCETAXEL [Suspect]
     Indication: UTERINE LEIOMYOSARCOMA
     Dosage: 75 MG/M2, UNK
     Route: 042
     Dates: start: 20110414

REACTIONS (1)
  - PLATELET COUNT DECREASED [None]
